FAERS Safety Report 8844341 (Version 2)
Quarter: 2012Q4

REPORT INFORMATION
  Report Type: 
  Country: US (occurrence: None)
  Receive Date: 20121016
  Receipt Date: 20121016
  Transmission Date: 20130627
  Serious: No
  Sender: FDA-Public Use
  Company Number: None

PATIENT
  Age: 82 Year
  Sex: Male
  Weight: 85.73 kg

DRUGS (1)
  1. CARDIOPLEGIC SOLUTION [Suspect]
     Indication: AORTIC VALVE REPLACEMENT
     Dates: start: 20120816, end: 20121016

REACTIONS (2)
  - Fungal infection [None]
  - Neuropathy peripheral [None]
